FAERS Safety Report 25035548 (Version 2)
Quarter: 2025Q2

REPORT INFORMATION
  Report Type: Spontaneous
  Country: US (occurrence: US)
  Receive Date: 20250304
  Receipt Date: 20250407
  Transmission Date: 20250716
  Serious: No
  Sender: PHARMING GROUP
  Company Number: US-PHARMING-PHAUS2025000297

PATIENT

DRUGS (2)
  1. JOENJA [Suspect]
     Active Substance: LENIOLISIB PHOSPHATE
     Indication: Activated PI3 kinase delta syndrome
     Dosage: 70 MILLIGRAM, BID
     Dates: end: 20250221
  2. JOENJA [Suspect]
     Active Substance: LENIOLISIB PHOSPHATE
     Dosage: 70 MILLIGRAM, BID
     Dates: start: 20250225

REACTIONS (1)
  - Influenza [Recovered/Resolved]

NARRATIVE: CASE EVENT DATE: 20250201
